FAERS Safety Report 6196535-4 (Version None)
Quarter: 2009Q2

REPORT INFORMATION
  Report Type: 
  Country: None (occurrence: None)
  Receive Date: 20090520
  Receipt Date: 20090318
  Transmission Date: 20091009
  Serious: No
  Sender: FDA-Public Use
  Company Number: US-ABBOTT-09P-163-0563831-00

PATIENT
  Sex: Female
  Weight: 104 kg

DRUGS (5)
  1. ZEMPLAR [Suspect]
     Indication: HYPERPARATHYROIDISM
     Route: 042
     Dates: end: 20080320
  2. ZEMPLAR [Suspect]
     Route: 042
     Dates: start: 20080301, end: 20080801
  3. ZEMPLAR [Suspect]
     Route: 042
     Dates: start: 20080801, end: 20080901
  4. SENSIPAR [Concomitant]
     Indication: HYPERPARATHYROIDISM
     Route: 048
     Dates: start: 20081201
  5. PHOSLO [Concomitant]
     Indication: HYPERPHOSPHATAEMIA
     Dosage: 4 WITH EACH MEAL

REACTIONS (2)
  - BLOOD CALCIUM INCREASED [None]
  - DYSGEUSIA [None]
